FAERS Safety Report 18527436 (Version 1)
Quarter: 2020Q4

REPORT INFORMATION
  Report Type: Spontaneous
  Country: US (occurrence: US)
  Receive Date: 20201120
  Receipt Date: 20201120
  Transmission Date: 20210114
  Serious: Yes (Hospitalization)
  Sender: FDA-Public Use
  Company Number: US-FRESENIUS MEDICAL CARE RENAL THERAPIES GROUP-FMC-2011-001392

PATIENT
  Age: 48 Year
  Sex: Male
  Weight: 75 kg

DRUGS (11)
  1. DELFLEX WITH DEXTROSE 4.25% LOW MAGNESIUM LOW CALCIUM [Suspect]
     Active Substance: CALCIUM CHLORIDE\DEXTROSE\MAGNESIUM CHLORIDE\SODIUM CHLORIDE\SODIUM LACTATE
     Indication: END STAGE RENAL DISEASE
     Dosage: FILL VOLUME 1500 ML, 5 EXCHANGES, TOTAL VOLUME 7500 ML, TOTAL SLEEP TIME 8.5 HOURS, NO LAST FILL, NO
     Route: 033
  2. VELPHORO [Concomitant]
     Active Substance: SUCROFERRIC OXYHYDROXIDE
  3. RENAPLEX D [Concomitant]
  4. FAMOTIDINE. [Concomitant]
     Active Substance: FAMOTIDINE
  5. GENTAMYCIN [Concomitant]
     Active Substance: GENTAMICIN
  6. DELFLEX WITH DEXTROSE 1.5% LOW MAGNESIUM LOW CALCIUM [Suspect]
     Active Substance: CALCIUM CHLORIDE\DEXTROSE\MAGNESIUM CHLORIDE\SODIUM CHLORIDE\SODIUM LACTATE
     Indication: END STAGE RENAL DISEASE
     Dosage: FILL VOLUME 1500 ML, 5 EXCHANGES, TOTAL VOLUME 7500 ML, TOTAL SLEEP TIME 8.5 HOURS, NO LAST FILL, NO
     Route: 033
  7. DELFLEX WITH DEXTROSE 2.5% LOW MAGNESIUM LOW CALCIUM [Suspect]
     Active Substance: CALCIUM CHLORIDE\DEXTROSE\MAGNESIUM CHLORIDE\SODIUM CHLORIDE\SODIUM LACTATE
     Indication: END STAGE RENAL DISEASE
     Dosage: FILL VOLUME 1500 ML, 5 EXCHANGES, TOTAL VOLUME 7500 ML, TOTAL SLEEP TIME 8.5 HOURS, NO LAST FILL, NO
     Route: 033
  8. ZEMPLAR [Concomitant]
     Active Substance: PARICALCITOL
  9. LISINOPRIL. [Concomitant]
     Active Substance: LISINOPRIL
  10. SENSIPAR [Concomitant]
     Active Substance: CINACALCET HYDROCHLORIDE
  11. SODIUM BICARBONATE. [Concomitant]
     Active Substance: SODIUM BICARBONATE

REACTIONS (1)
  - Inguinal hernia [Recovering/Resolving]
